FAERS Safety Report 5886071-4 (Version None)
Quarter: 2008Q3

REPORT INFORMATION
  Report Type: 
  Country: None (occurrence: None)
  Receive Date: 20080917
  Receipt Date: 20080905
  Transmission Date: 20090109
  Serious: Yes (Hospitalization)
  Sender: FDA-Public Use
  Company Number: CN-ROCHE-585142

PATIENT
  Sex: Male

DRUGS (7)
  1. MYCOPHENOLATE MOFETIL [Suspect]
     Indication: RENAL TRANSPLANT
     Dosage: STUDY MEDICATION WAS TEMPORARILY ADJUSTED/ INTERRUPTED.
     Route: 048
     Dates: start: 20050430, end: 20050923
  2. MYCOPHENOLATE MOFETIL [Suspect]
     Dosage: DOSE CHANGED BUT WAS NOT INTERRUPTED.
     Route: 048
     Dates: start: 20050924
  3. ERL080A [Suspect]
     Indication: RENAL TRANSPLANT
     Dosage: STUDY MEDICATION WAS TEMPORARILY ADJUSTED/ INTERRUPTED.
     Route: 048
     Dates: start: 20050430, end: 20050923
  4. ERL080A [Suspect]
     Dosage: DOSE CHANGED BUT WAS NOT INTERRUPTED.
     Route: 048
     Dates: start: 20050924
  5. PREDNISONE TAB [Concomitant]
     Route: 048
  6. PREDNISONE TAB [Concomitant]
     Dosage: FREQUENCY REPORTED AS QD.
     Route: 048
  7. NEORAL [Concomitant]
     Route: 048

REACTIONS (2)
  - ALVEOLITIS [None]
  - LUNG INFECTION [None]
